FAERS Safety Report 4281983-X (Version None)
Quarter: 2004Q1

REPORT INFORMATION
  Report Type: 
  Country: None (occurrence: None)
  Receive Date: 20040128
  Receipt Date: 20031118
  Transmission Date: 20041129
  Serious: Yes (Death)
  Sender: FDA-Public Use
  Company Number: SUS1-2003-00555

PATIENT
  Age: 47 Year
  Sex: 0

DRUGS (3)
  1. CARBATROL [Suspect]
  2. PENTAZOCINE/NALOXONE () [Suspect]
  3. DIAZEPAM [Suspect]

REACTIONS (1)
  - DEATH [None]
